FAERS Safety Report 25355965 (Version 3)
Quarter: 2025Q3

REPORT INFORMATION
  Report Type: Report from Study
  Country: US (occurrence: US)
  Receive Date: 20250525
  Receipt Date: 20250819
  Transmission Date: 20251020
  Serious: Yes (Hospitalization)
  Sender: NOVARTIS
  Company Number: US-002147023-NVSC2025US082354

PATIENT
  Age: 28 Year
  Sex: Female

DRUGS (2)
  1. KESIMPTA [Suspect]
     Active Substance: OFATUMUMAB
     Indication: Multiple sclerosis
     Dosage: 20 MG, QMO
     Route: 058
     Dates: start: 202503
  2. KESIMPTA [Suspect]
     Active Substance: OFATUMUMAB
     Indication: Relapsing multiple sclerosis
     Dosage: 20 MG, QMO
     Route: 058
     Dates: start: 202504

REACTIONS (6)
  - Multiple sclerosis relapse [Unknown]
  - Ill-defined disorder [Recovering/Resolving]
  - Abdominal discomfort [Unknown]
  - Fall [Unknown]
  - Anxiety [Unknown]
  - Fear of injection [Unknown]

NARRATIVE: CASE EVENT DATE: 20250501
